FAERS Safety Report 13597061 (Version 5)
Quarter: 2019Q2

REPORT INFORMATION
  Report Type: Report from Study
  Country: CN (occurrence: CN)
  Receive Date: 20170531
  Receipt Date: 20190610
  Transmission Date: 20190711
  Serious: Yes (Other)
  Sender: FDA-Public Use
  Company Number: PHHY2017CN078442

PATIENT
  Age: 44 Year
  Sex: Male

DRUGS (144)
  1. MYFORTIC [Suspect]
     Active Substance: MYCOPHENOLATE SODIUM
     Indication: IMMUNOSUPPRESSANT DRUG THERAPY
     Dosage: 1080 MG, QD
     Route: 065
     Dates: start: 20160712
  2. TACROLIMUS. [Suspect]
     Active Substance: TACROLIMUS
     Dosage: 3 MG, QD
     Route: 065
     Dates: start: 20160712, end: 20160715
  3. GLUCOSE [Concomitant]
     Active Substance: DEXTROSE
     Indication: BLOOD POTASSIUM INCREASED
     Dosage: 60 ML, QD
     Route: 042
     Dates: start: 20160704, end: 20160704
  4. GLUCOSE [Concomitant]
     Active Substance: DEXTROSE
     Dosage: 60 ML, QD
     Route: 042
     Dates: start: 20160718, end: 20160718
  5. ALPROSTADIL. [Concomitant]
     Active Substance: ALPROSTADIL
     Dosage: 20 UG, QD
     Route: 042
     Dates: start: 20160718, end: 20160718
  6. ASPIRIN. [Concomitant]
     Active Substance: ASPIRIN
     Indication: PROPHYLAXIS
     Dosage: 100 MG, QD
     Route: 048
     Dates: start: 20060707, end: 20160708
  7. CEFOPERAZONA/SULBACTAM [Concomitant]
     Active Substance: CEFOPERAZONE SODIUM\SULBACTAM SODIUM
     Indication: INFECTION PROPHYLAXIS
     Dosage: 1500 MG, QD
     Route: 058
     Dates: start: 20160711, end: 20160711
  8. CLOPIDOGREL [Concomitant]
     Active Substance: CLOPIDOGREL BISULFATE
     Indication: ISCHAEMIC HEART DISEASE PROPHYLAXIS
     Dosage: 75 MG, BID
     Route: 048
     Dates: start: 20160707, end: 20160708
  9. ISOSORBIDE MONONITRATE. [Concomitant]
     Active Substance: ISOSORBIDE MONONITRATE
     Dosage: 30 ML, QD
     Route: 042
     Dates: start: 20160711, end: 20160711
  10. ISOSORBIDE MONONITRATE. [Concomitant]
     Active Substance: ISOSORBIDE MONONITRATE
     Dosage: 30 ML, QD
     Route: 042
     Dates: start: 20160712, end: 20160712
  11. ISOSORBIDE MONONITRATE. [Concomitant]
     Active Substance: ISOSORBIDE MONONITRATE
     Dosage: 30 ML, QD
     Route: 042
     Dates: start: 20160714, end: 20160714
  12. LEVAMLODIPINE BESILATE [Concomitant]
     Active Substance: LEVAMLODIPINE BESYLATE
     Indication: HYPERTENSION
     Dosage: 70 MG, QD
     Route: 042
     Dates: start: 20160707, end: 20160707
  13. LINEZOLID. [Concomitant]
     Active Substance: LINEZOLID
     Indication: INFECTION PROPHYLAXIS
     Dosage: 600 MG, BID
     Route: 048
     Dates: start: 20160718, end: 20160721
  14. HEPARIN SODIUM/LOW MOLECULE HEPARIN SODIUM [Concomitant]
     Dosage: 40 MG, QD
     Route: 042
     Dates: start: 20160708, end: 20160708
  15. METOPROLOL. [Concomitant]
     Active Substance: METOPROLOL
     Indication: HYPERTENSION
     Dosage: 47.5 MG, BID
     Route: 048
     Dates: start: 20160707, end: 20170726
  16. MICAFUNGIN SODIUM [Concomitant]
     Active Substance: MICAFUNGIN SODIUM
     Indication: INFECTION PROPHYLAXIS
     Dosage: 100 MG, QD
     Route: 042
     Dates: start: 20160718, end: 20160721
  17. MICAFUNGIN SODIUM [Concomitant]
     Active Substance: MICAFUNGIN SODIUM
     Dosage: 50 MG, QD
     Route: 065
     Dates: start: 20160725, end: 20160725
  18. OMEPRAZOL [Concomitant]
     Active Substance: OMEPRAZOLE
     Indication: GASTRITIS PROPHYLAXIS
     Dosage: 10 MG, BID
     Route: 048
     Dates: start: 20160712
  19. POTASSIUM CHLORIDE. [Concomitant]
     Active Substance: POTASSIUM CHLORIDE
     Dosage: 15 ML, QD
     Route: 042
     Dates: start: 20160713, end: 20160713
  20. GLUTATHIONE/REDUCED GLUTATHIONE [Concomitant]
     Indication: PRODUCT USED FOR UNKNOWN INDICATION
     Dosage: 400 MG, TID
     Route: 048
     Dates: start: 20160725
  21. TORASEMIDE [Concomitant]
     Active Substance: TORSEMIDE
     Dosage: 20 MG, QD
     Route: 042
     Dates: start: 20160713, end: 20160713
  22. MYFORTIC [Suspect]
     Active Substance: MYCOPHENOLATE SODIUM
     Indication: RENAL TRANSPLANT
     Dosage: 1440 MG, QD
     Route: 065
     Dates: start: 20160704, end: 20160711
  23. PREDNISONE. [Suspect]
     Active Substance: PREDNISONE
     Indication: IMMUNOSUPPRESSANT DRUG THERAPY
     Dosage: 50 MG, QD
     Route: 065
     Dates: start: 20160706, end: 20160706
  24. PREDNISONE. [Suspect]
     Active Substance: PREDNISONE
     Dosage: 30 MG, QD
     Route: 065
     Dates: start: 20160709, end: 20160709
  25. TACROLIMUS. [Suspect]
     Active Substance: TACROLIMUS
     Indication: IMMUNOSUPPRESSANT DRUG THERAPY
     Dosage: 6 MG, QD
     Route: 065
     Dates: start: 20160707, end: 20160711
  26. SODIUM BICARBONATE. [Concomitant]
     Active Substance: SODIUM BICARBONATE
     Dosage: 125 ML, QD
     Route: 042
     Dates: start: 20160716, end: 20160716
  27. SODIUM BICARBONATE. [Concomitant]
     Active Substance: SODIUM BICARBONATE
     Dosage: 250 ML, QD
     Route: 042
     Dates: start: 20160719, end: 20160719
  28. HUMAN ALBUMIN /20% HUMAN BLOOD ALBUMIN [Concomitant]
     Dosage: 100 ML, QD
     Route: 042
     Dates: start: 20160722, end: 20160723
  29. AMBROXOL HYDROCHLORIDE [Concomitant]
     Active Substance: AMBROXOL HYDROCHLORIDE
     Indication: PRODUCT USED FOR UNKNOWN INDICATION
     Dosage: 210 MG, QD
     Route: 042
     Dates: start: 20160704, end: 20160712
  30. CEFOPERAZONE SODIUM AND TAZOBACTAM SODIUM [Concomitant]
     Active Substance: CEFOPERAZONE\TAZOBACTAM SODIUM
     Indication: SKIN TEST
     Dosage: 5000 MG, BID
     Route: 042
     Dates: start: 20160704, end: 20160711
  31. DOPAMINE [Concomitant]
     Active Substance: DOPAMINE\DOPAMINE HYDROCHLORIDE
     Indication: POLYURIA
     Dosage: 5 MG, QD
     Route: 042
     Dates: start: 20160704, end: 20160704
  32. FUROSEMIDE. [Concomitant]
     Active Substance: FUROSEMIDE
     Dosage: 60 MG, QD
     Route: 042
     Dates: start: 20160707, end: 20160707
  33. GANCICLOVIR. [Concomitant]
     Active Substance: GANCICLOVIR
     Indication: PRODUCT USED FOR UNKNOWN INDICATION
     Dosage: 50 MG, QD
     Route: 048
     Dates: start: 20160726
  34. HEPARIN SODIUM. [Concomitant]
     Active Substance: HEPARIN SODIUM
     Indication: PRODUCT USED FOR UNKNOWN INDICATION
     Dosage: 1.25 OT, QD
     Route: 042
     Dates: start: 20160704, end: 20160704
  35. INDAPAMIDE. [Concomitant]
     Active Substance: INDAPAMIDE
     Indication: HYPERTENSION
     Dosage: 1.5 MG, QD
     Route: 042
     Dates: start: 20160724, end: 20160726
  36. ISOSORBIDE MONONITRATE. [Concomitant]
     Active Substance: ISOSORBIDE MONONITRATE
     Dosage: 30 ML, QD
     Route: 042
     Dates: start: 20160710, end: 20160711
  37. ISOSORBIDE MONONITRATE. [Concomitant]
     Active Substance: ISOSORBIDE MONONITRATE
     Indication: ISCHAEMIC HEART DISEASE PROPHYLAXIS
     Dosage: 50 MG, BID
     Route: 048
     Dates: start: 20160714, end: 20170726
  38. MAGNESIUM ISOGLYCYRRHIZINATE [Concomitant]
     Active Substance: MAGNESIUM ISOGLYCYRRHIZINATE
     Dosage: 150 MG, QD
     Route: 042
     Dates: start: 20160707, end: 20160714
  39. PHENTOLAMINE MESYLATE. [Concomitant]
     Active Substance: PHENTOLAMINE MESYLATE
     Indication: POLYURIA
     Dosage: 5 MG, QD
     Route: 042
     Dates: start: 20160704, end: 20160704
  40. PHOSPHOCREATINE SODIUM [Concomitant]
     Active Substance: PHOSPHOCREATINE SODIUM
     Indication: ISCHAEMIC HEART DISEASE PROPHYLAXIS
     Dosage: 2000 MG, QD
     Route: 042
     Dates: start: 20160704, end: 20160706
  41. POTASSIUM CHLORIDE. [Concomitant]
     Active Substance: POTASSIUM CHLORIDE
     Dosage: 2000 MG, QID
     Route: 048
     Dates: start: 20160711, end: 20160711
  42. TORASEMIDE [Concomitant]
     Active Substance: TORSEMIDE
     Indication: POLYURIA
     Dosage: 20 MG, BID
     Route: 042
     Dates: start: 20160709, end: 20160709
  43. TORASEMIDE [Concomitant]
     Active Substance: TORSEMIDE
     Dosage: 40 MG, QD
     Route: 042
     Dates: start: 20160718, end: 20160718
  44. TORASEMIDE [Concomitant]
     Active Substance: TORSEMIDE
     Dosage: 40 MG, QD
     Route: 042
     Dates: start: 20160724, end: 20160724
  45. CALCIUM [Concomitant]
     Active Substance: CALCIUM
     Indication: MINERAL SUPPLEMENTATION
     Dosage: 30 ML, QD
     Route: 042
     Dates: start: 20160704, end: 20160704
  46. AMPHOTERICIN B. [Concomitant]
     Active Substance: AMPHOTERICIN B
     Indication: INFECTION PROPHYLAXIS
     Dosage: 30 MG, QD
     Route: 042
     Dates: start: 20160711, end: 20160718
  47. PREDNISONE. [Suspect]
     Active Substance: PREDNISONE
     Dosage: 40 MG, QD
     Route: 065
     Dates: start: 20160708, end: 20160708
  48. HUMAN ALBUMIN /20% HUMAN BLOOD ALBUMIN [Concomitant]
     Dosage: 100 ML, QD
     Route: 042
     Dates: start: 20160718, end: 20160718
  49. GLUCOSE [Concomitant]
     Active Substance: DEXTROSE
     Dosage: 60 ML, QD
     Route: 042
     Dates: start: 20160719, end: 20160719
  50. AMPHOMYCIN/AMPHOMYCIN B LIPOSOME [Concomitant]
     Indication: PRODUCT USED FOR UNKNOWN INDICATION
     Dosage: 30 MG, QD
     Route: 042
     Dates: start: 20060704, end: 20160710
  51. CINEPAZIDE MALEATE [Concomitant]
     Active Substance: CINEPAZIDE MALEATE
     Indication: ISCHAEMIC HEART DISEASE PROPHYLAXIS
     Dosage: 640 MG, QD
     Route: 042
     Dates: start: 20160704, end: 20160718
  52. CLOPIDOGREL [Concomitant]
     Active Substance: CLOPIDOGREL BISULFATE
     Dosage: 75 MG, QD
     Route: 048
     Dates: start: 20160708, end: 20170726
  53. INSULIN [Concomitant]
     Active Substance: INSULIN NOS
     Dosage: 16 IU, QD
     Route: 042
     Dates: start: 20160713, end: 20160713
  54. ISOSORBIDE MONONITRATE. [Concomitant]
     Active Substance: ISOSORBIDE MONONITRATE
     Indication: PRODUCT USED FOR UNKNOWN INDICATION
     Dosage: 30 ML, QD
     Route: 042
     Dates: start: 20160708, end: 20160709
  55. LANSOPRAZOLE. [Concomitant]
     Active Substance: LANSOPRAZOLE
     Indication: GASTRITIS PROPHYLAXIS
     Dosage: 60 MG, BID
     Route: 042
     Dates: start: 20160704, end: 20160710
  56. HEPARIN SODIUM/LOW MOLECULE HEPARIN SODIUM [Concomitant]
     Dosage: 40 MG, QD
     Route: 058
     Dates: start: 20160707, end: 20160708
  57. MAGNESIUM ISOGLYCYRRHIZINATE [Concomitant]
     Active Substance: MAGNESIUM ISOGLYCYRRHIZINATE
     Indication: PRODUCT USED FOR UNKNOWN INDICATION
     Dosage: 150 MG, QD
     Route: 042
     Dates: start: 20160704, end: 20160706
  58. PHENOBARBITAL. [Concomitant]
     Active Substance: PHENOBARBITAL
     Indication: PRODUCT USED FOR UNKNOWN INDICATION
     Dosage: 100 MG, QD
     Route: 030
     Dates: start: 20160704, end: 20160704
  59. POTASSIUM CHLORIDE. [Concomitant]
     Active Substance: POTASSIUM CHLORIDE
     Indication: MINERAL SUPPLEMENTATION
     Dosage: 2000 MG, TID
     Route: 048
     Dates: start: 20160709, end: 20160709
  60. TRIMETAZIDIN [Concomitant]
     Active Substance: TRIMETAZIDINE
     Indication: ISCHAEMIC HEART DISEASE PROPHYLAXIS
     Dosage: 35 MG, QD
     Route: 048
     Dates: start: 20160707
  61. CALCIUM [Concomitant]
     Active Substance: CALCIUM
     Dosage: 30 ML, QD
     Route: 042
     Dates: start: 20160718, end: 20160718
  62. BASILIXIMAB [Suspect]
     Active Substance: BASILIXIMAB
     Indication: RENAL TRANSPLANT
     Dosage: 20 MG, QD
     Route: 065
     Dates: start: 20160704, end: 20160704
  63. ALLOPURINOL. [Concomitant]
     Active Substance: ALLOPURINOL
     Indication: BLOOD URIC ACID INCREASED
     Dosage: 100 MG, TID
     Route: 042
     Dates: start: 20160722, end: 20160726
  64. CEFOPERAZONE SODIUM AND TAZOBACTAM SODIUM [Concomitant]
     Active Substance: CEFOPERAZONE\TAZOBACTAM SODIUM
     Indication: PRODUCT USED FOR UNKNOWN INDICATION
     Dosage: 2500 MG, QD
     Route: 058
     Dates: start: 20160704, end: 20160704
  65. DIAMMONIUM GLYCYRRHIZINATE [Concomitant]
     Active Substance: HERBALS\DIAMMONIUM GLYCYRRHIZINATE
     Indication: PRODUCT USED FOR UNKNOWN INDICATION
     Dosage: 100 MG, BID
     Route: 048
     Dates: start: 20160725, end: 20160727
  66. INSULIN [Concomitant]
     Active Substance: INSULIN NOS
     Indication: BLOOD POTASSIUM INCREASED
     Dosage: 16 IU, QD
     Route: 042
     Dates: start: 20160704, end: 20160704
  67. ISOSORBIDE MONONITRATE. [Concomitant]
     Active Substance: ISOSORBIDE MONONITRATE
     Dosage: 30 ML, QD
     Route: 042
     Dates: start: 20160711, end: 20160712
  68. HEPARIN SODIUM/LOW MOLECULE HEPARIN SODIUM [Concomitant]
     Indication: THROMBOSIS PROPHYLAXIS
     Dosage: 40 MG, QD
     Route: 058
     Dates: start: 20160707, end: 20160707
  69. HEPARIN SODIUM/LOW MOLECULE HEPARIN SODIUM [Concomitant]
     Dosage: 40 MG, BID
     Route: 058
     Dates: start: 20160709, end: 20160717
  70. POTASSIUM CHLORIDE. [Concomitant]
     Active Substance: POTASSIUM CHLORIDE
     Dosage: 2000 MG, BID
     Route: 048
     Dates: start: 20160710, end: 20160710
  71. RECOMBINANT HUMAN ERYTHROPOIETIN [Concomitant]
     Active Substance: ERYTHROPOIETIN
     Dosage: 1 OT, QD
     Route: 042
     Dates: start: 20160721, end: 20160721
  72. RIBOFLAVIN SODIUM PHOSPHATE [Concomitant]
     Active Substance: RIBOFLAVIN 5^-PHOSPHATE SODIUM
     Indication: PRODUCT USED FOR UNKNOWN INDICATION
     Dosage: 20 MG, QD
     Route: 042
     Dates: start: 20160704, end: 20160706
  73. SODIUM PHOSPHATE [Concomitant]
     Active Substance: SODIUM PHOSPHATE
     Indication: INTESTINAL OBSTRUCTION
     Dosage: 130 ML, QD
     Route: 042
     Dates: start: 20160707, end: 20160707
  74. TORASEMIDE [Concomitant]
     Active Substance: TORSEMIDE
     Dosage: 20 MG, QD
     Route: 042
     Dates: start: 20160714, end: 20160714
  75. CALCIUM [Concomitant]
     Active Substance: CALCIUM
     Dosage: 10 ML, QD
     Route: 042
     Dates: start: 20160712, end: 20160712
  76. TACROLIMUS. [Suspect]
     Active Substance: TACROLIMUS
     Dosage: 5 MG, QD
     Route: 065
     Dates: start: 20160719, end: 20160722
  77. POTASSIUM/10 % POTASSIUM [Concomitant]
     Dosage: 20 ML, QD
     Route: 048
     Dates: start: 20160709, end: 20160709
  78. SODIUM BICARBONATE. [Concomitant]
     Active Substance: SODIUM BICARBONATE
     Dosage: 125 ML, QD
     Route: 042
     Dates: start: 20160718, end: 20160718
  79. HUMAN ALBUMIN /20% HUMAN BLOOD ALBUMIN [Concomitant]
     Indication: SUPPLEMENTATION THERAPY
     Dosage: 100 ML, QD
     Route: 042
     Dates: start: 20160704, end: 20160704
  80. HUMAN ALBUMIN /20% HUMAN BLOOD ALBUMIN [Concomitant]
     Dosage: 100 ML, BID
     Route: 042
     Dates: start: 20160704, end: 20160711
  81. HUMAN ALBUMIN /20% HUMAN BLOOD ALBUMIN [Concomitant]
     Dosage: 50 ML, QD
     Route: 042
     Dates: start: 20160715, end: 20160716
  82. ALPROSTADIL. [Concomitant]
     Active Substance: ALPROSTADIL
     Indication: POOR PERIPHERAL CIRCULATION
     Dosage: 20 UG, QD
     Route: 042
     Dates: start: 20160704, end: 20160712
  83. AMPHOMYCIN/AMPHOMYCIN B LIPOSOME [Concomitant]
     Dosage: 30 MG, QD
     Route: 042
     Dates: start: 20160711, end: 20160718
  84. INSULIN [Concomitant]
     Active Substance: INSULIN NOS
     Dosage: 14 IU, QD
     Route: 042
     Dates: start: 20160718, end: 20160718
  85. ISOSORBIDE MONONITRATE. [Concomitant]
     Active Substance: ISOSORBIDE MONONITRATE
     Dosage: 30 ML, QD
     Route: 042
     Dates: start: 20160709, end: 20160709
  86. LIDOCAINE. [Concomitant]
     Active Substance: LIDOCAINE
     Indication: POLYURIA
     Dosage: 10 ML, QD
     Route: 042
     Dates: start: 20160704, end: 20160704
  87. RIBOFLAVIN SODIUM PHOSPHATE [Concomitant]
     Active Substance: RIBOFLAVIN 5^-PHOSPHATE SODIUM
     Dosage: 20 MG, QD
     Route: 042
     Dates: start: 20160707, end: 20160714
  88. TIGECYCLINE. [Concomitant]
     Active Substance: TIGECYCLINE
     Indication: INFECTION PROPHYLAXIS
     Dosage: 100 MG, QD
     Route: 042
     Dates: start: 20160704, end: 20160704
  89. TIGECYCLINE. [Concomitant]
     Active Substance: TIGECYCLINE
     Dosage: 50 MG, BID
     Route: 042
     Dates: start: 20160705, end: 20160718
  90. TORASEMIDE [Concomitant]
     Active Substance: TORSEMIDE
     Dosage: 20 MG, QD
     Route: 042
     Dates: start: 20160719, end: 20160720
  91. CALCIUM [Concomitant]
     Active Substance: CALCIUM
     Dosage: 20 ML, QD
     Route: 042
     Dates: start: 20160719, end: 20160719
  92. PREDNISONE. [Suspect]
     Active Substance: PREDNISONE
     Dosage: 50 MG, QD
     Route: 065
     Dates: start: 20160707, end: 20160707
  93. PREDNISONE. [Suspect]
     Active Substance: PREDNISONE
     Dosage: 20 MG, QD
     Route: 065
     Dates: start: 20160710, end: 20160710
  94. POTASSIUM/10 % POTASSIUM [Concomitant]
     Indication: MINERAL SUPPLEMENTATION
     Dosage: 30 ML, QD
     Route: 048
     Dates: start: 20160708, end: 20160708
  95. SODIUM BICARBONATE. [Concomitant]
     Active Substance: SODIUM BICARBONATE
     Dosage: 250 ML, QD
     Route: 042
     Dates: start: 20160718, end: 20160718
  96. SODIUM BICARBONATE. [Concomitant]
     Active Substance: SODIUM BICARBONATE
     Dosage: 150 ML (5 %), QD
     Route: 042
     Dates: start: 20160718, end: 20160718
  97. HUMAN ALBUMIN /20% HUMAN BLOOD ALBUMIN [Concomitant]
     Dosage: 100 ML, QD
     Route: 042
     Dates: start: 20160719, end: 20160719
  98. ATORVASTATIN CALCIUM. [Concomitant]
     Active Substance: ATORVASTATIN CALCIUM
     Indication: LIPIDS INCREASED
     Dosage: 20 MG, QD
     Route: 048
     Dates: start: 20160707, end: 20170726
  99. FUROSEMIDE. [Concomitant]
     Active Substance: FUROSEMIDE
     Dosage: 60 MG, QD
     Route: 042
     Dates: start: 20160721, end: 20160722
  100. LEVAMLODIPINE BESILATE [Concomitant]
     Active Substance: LEVAMLODIPINE BESYLATE
     Dosage: 5 MG, QD
     Route: 042
     Dates: start: 20160708, end: 20160726
  101. MOXIFLOXACIN. [Concomitant]
     Active Substance: MOXIFLOXACIN
     Indication: PRODUCT USED FOR UNKNOWN INDICATION
     Dosage: 400 MG, QD
     Route: 042
     Dates: start: 20160704, end: 20160704
  102. CALCIUM [Concomitant]
     Active Substance: CALCIUM
     Dosage: 20 ML, QD
     Route: 042
     Dates: start: 20160718, end: 20160718
  103. MAGNESIUM SULFATE. [Concomitant]
     Active Substance: MAGNESIUM SULFATE
     Indication: PROPHYLAXIS
     Dosage: 20 ML, QD
     Route: 042
     Dates: start: 20160713, end: 20160713
  104. CALCIUM GLUCONATE. [Concomitant]
     Active Substance: CALCIUM GLUCONATE
     Indication: PRODUCT USED FOR UNKNOWN INDICATION
     Dosage: 50 ML, QD (20 ML AND 30 ML)
     Route: 042
     Dates: start: 20160718, end: 20160718
  105. OMEPRAZOLE. [Concomitant]
     Active Substance: OMEPRAZOLE
     Indication: GASTRITIS PROPHYLAXIS
     Dosage: 10 MG, BID
     Route: 048
     Dates: start: 20160712, end: 20170726
  106. PREDNISONE. [Suspect]
     Active Substance: PREDNISONE
     Dosage: 10 MG, QD
     Route: 065
     Dates: start: 20160711, end: 20160714
  107. TACROLIMUS. [Suspect]
     Active Substance: TACROLIMUS
     Dosage: 6 MG, QD
     Route: 065
     Dates: start: 20160723
  108. ALANYL GLUTAMINE [Concomitant]
     Active Substance: ALANYL GLUTAMINE
     Indication: NUTRITIONAL SUPPLEMENTATION
     Dosage: 2000 MG, QD
     Route: 065
     Dates: start: 20060705, end: 20160707
  109. SODIUM BICARBONATE. [Concomitant]
     Active Substance: SODIUM BICARBONATE
     Indication: MINERAL SUPPLEMENTATION
     Dosage: 250 ML (10 %), QD
     Route: 042
     Dates: start: 20160704, end: 20160704
  110. HUMAN ALBUMIN /20% HUMAN BLOOD ALBUMIN [Concomitant]
     Dosage: 100 ML, QD
     Route: 042
     Dates: start: 20160712, end: 20160714
  111. GLUCOSE [Concomitant]
     Active Substance: DEXTROSE
     Indication: PROPHYLAXIS
     Dosage: 500 ML(10%), QD
     Route: 042
     Dates: start: 20160713, end: 20160713
  112. ASPIRIN. [Concomitant]
     Active Substance: ASPIRIN
     Dosage: 100 MG, QD
     Route: 048
     Dates: start: 20160708, end: 20170726
  113. FUROSEMIDE. [Concomitant]
     Active Substance: FUROSEMIDE
     Dosage: 40 MG, QD
     Route: 042
     Dates: start: 20160708, end: 20160726
  114. INSULIN [Concomitant]
     Active Substance: INSULIN NOS
     Dosage: 16 IU, QD
     Route: 042
     Dates: start: 20160718, end: 20160718
  115. INSULIN [Concomitant]
     Active Substance: INSULIN NOS
     Dosage: 14 IU, QD
     Route: 042
     Dates: start: 20160719, end: 20160719
  116. ISOSORBIDE MONONITRATE. [Concomitant]
     Active Substance: ISOSORBIDE MONONITRATE
     Dosage: 30 ML, QD
     Route: 042
     Dates: start: 20160713, end: 20160713
  117. LANSOPRAZOLE. [Concomitant]
     Active Substance: LANSOPRAZOLE
     Dosage: 69 MG, QD
     Route: 042
     Dates: start: 20060111, end: 20160712
  118. NITROGLYCERIN. [Concomitant]
     Active Substance: NITROGLYCERIN
     Dosage: 20 MG, QD
     Route: 042
     Dates: start: 20160706, end: 20160707
  119. PHENTOLAMINE MESYLATE. [Concomitant]
     Active Substance: PHENTOLAMINE MESYLATE
     Dosage: 5 MG, QD
     Route: 042
     Dates: start: 20160706, end: 20160706
  120. POTASSIUM CHLORIDE. [Concomitant]
     Active Substance: POTASSIUM CHLORIDE
     Dosage: 2000 MG, BID
     Route: 042
     Dates: start: 20160712, end: 20160712
  121. RECOMBINANT HUMAN ERYTHROPOIETIN [Concomitant]
     Active Substance: ERYTHROPOIETIN
     Dosage: 1 OT, QD
     Route: 058
     Dates: start: 20160719, end: 20160719
  122. RECOMBINANT HUMAN ERYTHROPOIETIN [Concomitant]
     Active Substance: ERYTHROPOIETIN
     Dosage: 1 OT, QD
     Route: 058
     Dates: start: 20160723, end: 20160724
  123. TORASEMIDE [Concomitant]
     Active Substance: TORSEMIDE
     Dosage: 20 MG, QD
     Route: 042
     Dates: start: 20160710, end: 20160710
  124. BASILIXIMAB [Suspect]
     Active Substance: BASILIXIMAB
     Indication: IMMUNOSUPPRESSANT DRUG THERAPY
  125. METHYLPREDNISOLONE. [Suspect]
     Active Substance: METHYLPREDNISOLONE
     Indication: IMMUNOSUPPRESSION
     Dosage: 500 MG, QD
     Route: 065
     Dates: start: 20160704, end: 20160704
  126. TACROLIMUS. [Suspect]
     Active Substance: TACROLIMUS
     Dosage: 7 MG, QD
     Route: 065
     Dates: start: 20160716, end: 20160718
  127. GLUCOSE [Concomitant]
     Active Substance: DEXTROSE
     Dosage: 40 ML, (50%) QD
     Route: 042
     Dates: start: 20160713, end: 20160713
  128. CEFOPERAZONA/SULBACTAM [Concomitant]
     Active Substance: CEFOPERAZONE SODIUM\SULBACTAM SODIUM
     Indication: SKIN TEST
     Dosage: 3000 MG, BID
     Route: 042
     Dates: start: 20160711, end: 20160718
  129. DEZOCINE [Concomitant]
     Active Substance: DEZOCINE
     Indication: ANALGESIC THERAPY
     Dosage: 30 MG, QD
     Route: 042
     Dates: start: 20160704, end: 20160704
  130. DOPAMINE [Concomitant]
     Active Substance: DOPAMINE\DOPAMINE HYDROCHLORIDE
     Dosage: 5 MG, QD
     Route: 065
     Dates: start: 20160706, end: 20160706
  131. FOLIC ACID. [Concomitant]
     Active Substance: FOLIC ACID
     Indication: ANAEMIA
     Dosage: 5 MG, TID
     Route: 048
     Dates: start: 20160719, end: 20160726
  132. FUROSEMIDE. [Concomitant]
     Active Substance: FUROSEMIDE
     Indication: POLYURIA
     Dosage: 100 MG, QD
     Route: 042
     Dates: start: 20160704, end: 20160704
  133. FUROSEMIDE. [Concomitant]
     Active Substance: FUROSEMIDE
     Dosage: 60 MG, QD
     Route: 042
     Dates: start: 20160706, end: 20160706
  134. IRON SUCROSE [Concomitant]
     Active Substance: IRON SUCROSE
     Indication: ANAEMIA
     Dosage: 100 MG, QD
     Route: 042
     Dates: start: 20160719, end: 20160723
  135. ISOSORBIDE MONONITRATE. [Concomitant]
     Active Substance: ISOSORBIDE MONONITRATE
     Dosage: 30 ML, QD
     Route: 042
     Dates: start: 20160714, end: 20160715
  136. MUCOPOLYSACCHARIDE POLYSULFURIC ACID ESTER [Concomitant]
     Indication: SKIN DISORDER
     Dosage: 14000 MG, QD
     Route: 065
     Dates: start: 20160716, end: 20160716
  137. NITROGLYCERIN. [Concomitant]
     Active Substance: NITROGLYCERIN
     Indication: ISCHAEMIC HEART DISEASE PROPHYLAXIS
     Dosage: 20 MG, QD
     Route: 042
     Dates: start: 20160704, end: 20160704
  138. NITROPRUSSIDE [Concomitant]
     Active Substance: NITROPRUSSIDE
     Indication: BLOOD PRESSURE MEASUREMENT
     Dosage: 50 MG, QD
     Route: 042
     Dates: start: 20060108, end: 20060108
  139. PHOSPHOCREATINE SODIUM [Concomitant]
     Active Substance: PHOSPHOCREATINE SODIUM
     Dosage: 2000 MG, QD
     Route: 042
     Dates: start: 20160706, end: 20160722
  140. POTASSIUM CHLORIDE. [Concomitant]
     Active Substance: POTASSIUM CHLORIDE
     Dosage: 2000 MG, BID
     Route: 048
     Dates: start: 20160713, end: 20160713
  141. RECOMBINANT HUMAN ERYTHROPOIETIN [Concomitant]
     Active Substance: ERYTHROPOIETIN
     Indication: PRODUCT USED FOR UNKNOWN INDICATION
     Dosage: 1 OT, QD
     Route: 058
     Dates: start: 20160713, end: 20160713
  142. SCOPOLAMINE [Concomitant]
     Active Substance: SCOPOLAMINE
     Indication: PRODUCT USED FOR UNKNOWN INDICATION
     Dosage: 0.3 MG, QD
     Route: 030
     Dates: start: 20160704, end: 20160704
  143. TORASEMIDE [Concomitant]
     Active Substance: TORSEMIDE
     Dosage: 20 MG, QD
     Route: 042
     Dates: start: 20160711, end: 20160711
  144. TORASEMIDE [Concomitant]
     Active Substance: TORSEMIDE
     Dosage: 20 MG, BID
     Route: 042
     Dates: start: 20160712, end: 20160712

REACTIONS (12)
  - Hyperkalaemia [Recovered/Resolved]
  - White blood cell count increased [Unknown]
  - Lymphocyte count decreased [Unknown]
  - Glomerular filtration rate decreased [Unknown]
  - Myocardial infarction [Recovered/Resolved]
  - Platelet count decreased [Unknown]
  - Blood glucose increased [Unknown]
  - Neutrophil count increased [Unknown]
  - Incision site pain [Recovered/Resolved]
  - Anaemia [Recovered/Resolved]
  - Blood urea increased [Unknown]
  - Bilirubin conjugated increased [Unknown]

NARRATIVE: CASE EVENT DATE: 20160704
